FAERS Safety Report 18570298 (Version 7)
Quarter: 2021Q4

REPORT INFORMATION
  Report Type: Spontaneous
  Country: US (occurrence: US)
  Receive Date: 20201202
  Receipt Date: 20211228
  Transmission Date: 20220304
  Serious: No
  Sender: FDA-Public Use
  Company Number: US-GLAXOSMITHKLINE-US2020AMR234295

PATIENT
  Sex: Female

DRUGS (8)
  1. ZEJULA [Suspect]
     Active Substance: NIRAPARIB
     Indication: Ovarian cancer
     Dosage: 200 MG, QD
     Dates: start: 20201111
  2. ZEJULA [Suspect]
     Active Substance: NIRAPARIB
     Dosage: 200 MG, QD
     Route: 048
  3. ZEJULA [Suspect]
     Active Substance: NIRAPARIB
     Dosage: 200 MG, QD
  4. ZEJULA [Suspect]
     Active Substance: NIRAPARIB
     Dosage: 200 MG, QD
  5. ZEJULA [Suspect]
     Active Substance: NIRAPARIB
     Dosage: 200 MG, QD
     Route: 048
  6. ZEJULA [Suspect]
     Active Substance: NIRAPARIB
     Dosage: 200 MG, QD
     Route: 048
  7. COVID 19 VACCINE [Concomitant]
     Indication: COVID-19 prophylaxis
     Dosage: UNK
  8. ELIQUIS [Concomitant]
     Active Substance: APIXABAN
     Indication: Thrombosis
     Dosage: UNK UNK, BID

REACTIONS (8)
  - Fatigue [Not Recovered/Not Resolved]
  - Nausea [Not Recovered/Not Resolved]
  - Hypertension [Not Recovered/Not Resolved]
  - Headache [Not Recovered/Not Resolved]
  - Tension headache [Unknown]
  - Pain [Not Recovered/Not Resolved]
  - Product dose omission in error [Unknown]
  - Drug monitoring procedure not performed [Unknown]
